FAERS Safety Report 9438291 (Version 1)
Quarter: 2013Q3

REPORT INFORMATION
  Report Type: Spontaneous
  Country: FR (occurrence: FR)
  Receive Date: 20130802
  Receipt Date: 20130802
  Transmission Date: 20140515
  Serious: Yes (Hospitalization)
  Sender: FDA-Public Use
  Company Number: FR-JNJFOC-20130715079

PATIENT
  Age: 34 Year
  Sex: Female

DRUGS (4)
  1. XEPLION [Suspect]
     Indication: PRODUCT USED FOR UNKNOWN INDICATION
     Route: 030
     Dates: start: 20130621
  2. XEPLION [Suspect]
     Indication: PRODUCT USED FOR UNKNOWN INDICATION
     Route: 030
     Dates: start: 20130719
  3. XEPLION [Suspect]
     Indication: PRODUCT USED FOR UNKNOWN INDICATION
     Route: 030
     Dates: start: 20130526
  4. RISPERDAL [Concomitant]
     Route: 065
     Dates: start: 20130719

REACTIONS (7)
  - Delirium [Unknown]
  - Hallucination [Unknown]
  - Insomnia [Unknown]
  - Eating disorder [Unknown]
  - Conversion disorder [Unknown]
  - Thinking abnormal [Unknown]
  - Homicidal ideation [Unknown]
